FAERS Safety Report 9434971 (Version 1)
Quarter: 2013Q3

REPORT INFORMATION
  Report Type: Report from Study
  Country: RU (occurrence: RU)
  Receive Date: 20130801
  Receipt Date: 20130801
  Transmission Date: 20140515
  Serious: No
  Sender: FDA-Public Use
  Company Number: PHHY2013RU081501

PATIENT
  Age: 28 Year
  Sex: Female

DRUGS (3)
  1. NO TREATMENT RECEIVED [Suspect]
  2. TASIGNA [Suspect]
     Indication: CHRONIC LEUKAEMIA
     Dosage: 800 MG, DAILY
     Route: 048
     Dates: start: 20111111, end: 20120717
  3. INTERFERON [Suspect]
     Dosage: 3000000 IU
     Route: 048
     Dates: start: 20120718

REACTIONS (2)
  - Exposure during pregnancy [Unknown]
  - Normal newborn [Unknown]
